FAERS Safety Report 5076425-0 (Version None)
Quarter: 2006Q3

REPORT INFORMATION
  Report Type: 
  Country: None (occurrence: None)
  Receive Date: 20060725
  Receipt Date: 20060420
  Transmission Date: 20061208
  Serious: No
  Sender: FDA-Public Use
  Company Number: 200612570BWH

PATIENT
  Age: 71 Year
  Sex: Male

DRUGS (7)
  1. NEXAVAR [Suspect]
     Indication: METASTATIC RENAL CELL CARCINOMA
     Dosage: 400 MG, BID, ORAL
     Route: 048
     Dates: start: 20060414
  2. GLYBURIDE [Concomitant]
  3. ALTACE [Concomitant]
  4. COREG [Concomitant]
  5. PROSCAR [Concomitant]
  6. ZOLOFT [Concomitant]
  7. LIPITOR [Concomitant]

REACTIONS (7)
  - BLOOD GLUCOSE INCREASED [None]
  - CANDIDIASIS [None]
  - EATING DISORDER [None]
  - GLOSSITIS [None]
  - ORAL MUCOSAL EXFOLIATION [None]
  - ORAL PAIN [None]
  - UNEVALUABLE EVENT [None]
